FAERS Safety Report 9697658 (Version 1)
Quarter: 2013Q4

REPORT INFORMATION
  Report Type: Spontaneous
  Country: US (occurrence: US)
  Receive Date: 20131120
  Receipt Date: 20131120
  Transmission Date: 20140711
  Serious: No
  Sender: FDA-Public Use
  Company Number: US-PFIZER INC-2013328537

PATIENT
  Age: 54 Year
  Sex: Female

DRUGS (3)
  1. LYRICA [Suspect]
     Indication: NEURALGIA
     Dosage: 30 MG, AS NEEDED
     Dates: start: 20131115
  2. PREDNISONE [Suspect]
     Indication: NEURITIS
     Dosage: 24 MG, (6 TABLETS OF 4 MG EACH)UNK
     Dates: start: 20131115
  3. TIAZAC [Concomitant]
     Indication: HYPERTENSION
     Dosage: 240 MG, DAILY

REACTIONS (4)
  - Insomnia [Unknown]
  - Anxiety [Unknown]
  - Yawning [Unknown]
  - Headache [Unknown]
